FAERS Safety Report 16276607 (Version 1)
Quarter: 2019Q2

REPORT INFORMATION
  Report Type: Spontaneous
  Country: US (occurrence: US)
  Receive Date: 20190401
  Receipt Date: 20190401
  Transmission Date: 20190711
  Serious: Yes (Other)
  Sender: FDA-Public Use
  Company Number: None

PATIENT
  Age: 68 Year
  Sex: Female
  Weight: 74.39 kg

DRUGS (8)
  1. FISH OIL [Concomitant]
     Active Substance: FISH OIL
  2. MILK THISTLE [Concomitant]
     Active Substance: DIETARY SUPPLEMENT\HERBALS\MILK THISTLE
  3. MAGNESIUM OXIDE. [Concomitant]
     Active Substance: MAGNESIUM OXIDE
  4. TELMISA HCTZ 80-12.5MG TAB TOR/TELMISARTAN HYDROCHLOROTHIAZIDE [Suspect]
     Active Substance: HYDROCHLOROTHIAZIDE\TELMISARTAN
     Indication: HYPERTENSION
     Dosage: ?          OTHER STRENGTH:80MG/12.5MG;QUANTITY:90 TABLETS;?
     Route: 048
     Dates: start: 20190319, end: 20190323
  5. METFORMIN [Concomitant]
     Active Substance: METFORMIN HYDROCHLORIDE
  6. B12 SUPPLEMENT [Concomitant]
  7. CHROMIUM PICOLUNATE [Concomitant]
  8. CENTRUM VITAMINS [Concomitant]

REACTIONS (7)
  - Dry throat [None]
  - Blood glucose increased [None]
  - Cough [None]
  - Oropharyngeal pain [None]
  - Fatigue [None]
  - Headache [None]
  - Back pain [None]

NARRATIVE: CASE EVENT DATE: 20190319
